FAERS Safety Report 4312236-9 (Version None)
Quarter: 2004Q1

REPORT INFORMATION
  Report Type: 
  Country: None (occurrence: None)
  Receive Date: 20040302
  Receipt Date: 20031103
  Transmission Date: 20041129
  Serious: No
  Sender: FDA-Public Use
  Company Number: 200327852BWH

PATIENT
  Age: 81 Year
  Sex: Male
  Weight: 82.5547 kg

DRUGS (4)
  1. LEVITRA [Suspect]
     Indication: ERECTILE DYSFUNCTION
     Dosage: 10MG ONCE ORAL
     Route: 048
     Dates: start: 20031001
  2. COUMADIN [Concomitant]
  3. LISINOPRIL [Concomitant]
  4. HYTRIN [Concomitant]

REACTIONS (3)
  - DIARRHOEA [None]
  - DYSPEPSIA [None]
  - ERECTILE DYSFUNCTION [None]
